FAERS Safety Report 21934520 (Version 7)
Quarter: 2025Q1

REPORT INFORMATION
  Report Type: Spontaneous
  Country: US (occurrence: US)
  Receive Date: 20230201
  Receipt Date: 20250114
  Transmission Date: 20250409
  Serious: Yes (Other)
  Sender: PFIZER
  Company Number: US-PFIZER INC-202300038447

PATIENT
  Age: 44 Year
  Sex: Female

DRUGS (4)
  1. SOMAVERT [Suspect]
     Active Substance: PEGVISOMANT
  2. SOMAVERT [Suspect]
     Active Substance: PEGVISOMANT
     Dates: start: 202211
  3. SOMAVERT [Suspect]
     Active Substance: PEGVISOMANT
     Dosage: 20 MG, DAILY (UNDER THE SKIN)
     Dates: start: 202211
  4. SOMAVERT [Suspect]
     Active Substance: PEGVISOMANT
     Route: 058
     Dates: start: 202211, end: 2024

REACTIONS (7)
  - Pituitary tumour [Unknown]
  - Pain [Not Recovered/Not Resolved]
  - Headache [Unknown]
  - Weight increased [Unknown]
  - Brain fog [Unknown]
  - Vision blurred [Unknown]
  - Off label use [Unknown]
